FAERS Safety Report 9722967 (Version 1)
Quarter: 2013Q4

REPORT INFORMATION
  Report Type: Spontaneous
  Country: US (occurrence: None)
  Receive Date: 20131126
  Receipt Date: 20131126
  Transmission Date: 20140711
  Serious: Yes (Other)
  Sender: FDA-Public Use
  Company Number: 2013HINOTH0255

PATIENT
  Sex: Female

DRUGS (1)
  1. TENOFOVIR (TENOFOVIR) UNKNOWN [Suspect]
     Indication: ANTIRETROVIRAL THERAPY
     Dates: start: 20100720, end: 20120809

REACTIONS (2)
  - Abortion spontaneous [None]
  - Exposure during pregnancy [None]
